FAERS Safety Report 7404843-1 (Version None)
Quarter: 2011Q2

REPORT INFORMATION
  Report Type: 
  Country: None (occurrence: None)
  Receive Date: 20110411
  Receipt Date: 20110328
  Transmission Date: 20111010
  Serious: Yes (Other)
  Sender: FDA-Public Use
  Company Number: US-JNJFOC-20101204399

PATIENT
  Sex: Male

DRUGS (4)
  1. ZYPREXA [Suspect]
     Indication: PRODUCT USED FOR UNKNOWN INDICATION
     Route: 065
  2. SEROQUEL [Suspect]
     Indication: PRODUCT USED FOR UNKNOWN INDICATION
     Route: 065
  3. RISPERDAL [Suspect]
     Indication: SLEEP DISORDER
     Route: 048
  4. RISPERDAL [Suspect]
     Indication: ABNORMAL BEHAVIOUR
     Route: 048

REACTIONS (20)
  - TIC [None]
  - DROOLING [None]
  - TARDIVE DYSKINESIA [None]
  - AGGRESSION [None]
  - CONVULSION [None]
  - MOVEMENT DISORDER [None]
  - GENERAL PHYSICAL HEALTH DETERIORATION [None]
  - TORTICOLLIS [None]
  - DYSTONIA [None]
  - HYPERAESTHESIA [None]
  - AKATHISIA [None]
  - BLEPHAROSPASM [None]
  - APHASIA [None]
  - DIABETES MELLITUS [None]
  - COUGH [None]
  - TONGUE DISORDER [None]
  - ABNORMAL BEHAVIOUR [None]
  - PARKINSONISM [None]
  - MEDICATION ERROR [None]
  - FLAT AFFECT [None]
